FAERS Safety Report 4623950-X (Version None)
Quarter: 2005Q1

REPORT INFORMATION
  Report Type: 
  Country: None (occurrence: None)
  Receive Date: 20050331
  Receipt Date: 20050324
  Transmission Date: 20050727
  Serious: Yes (Hospitalization)
  Sender: FDA-Public Use
  Company Number: FR-ROCHE-399576

PATIENT
  Age: 70 Year
  Sex: Female

DRUGS (5)
  1. VALIUM [Suspect]
     Indication: DRUG USE FOR UNKNOWN INDICATION
     Route: 048
     Dates: end: 20050305
  2. ALCOHOL [Suspect]
     Indication: DRUG USE FOR UNKNOWN INDICATION
     Route: 065
  3. SECTRAL [Concomitant]
  4. MOPRAL [Concomitant]
  5. CORTANCYL [Concomitant]

REACTIONS (2)
  - ALCOHOL USE [None]
  - FALL [None]
